FAERS Safety Report 21301259 (Version 2)
Quarter: 2022Q4

REPORT INFORMATION
  Report Type: Report from Study
  Country: BR (occurrence: BR)
  Receive Date: 20220907
  Receipt Date: 20221006
  Transmission Date: 20230112
  Serious: Yes (Other)
  Sender: FDA-Public Use
  Company Number: BR-JNJFOC-20220855600

PATIENT
  Age: 55 Year
  Sex: Female
  Weight: 90 kg

DRUGS (12)
  1. SIMPONI [Suspect]
     Active Substance: GOLIMUMAB
     Indication: Psoriatic arthropathy
     Dosage: 01-DEC-2021 (ACCORDING TO PSP); 4 YEARS AGO ( ACCORDING TO CAREGIVER).
     Route: 058
     Dates: end: 20220401
  2. SIMPONI [Suspect]
     Active Substance: GOLIMUMAB
     Indication: Psoriasis
  3. NICOTINE [Suspect]
     Active Substance: NICOTINE
     Indication: Product used for unknown indication
     Route: 065
  4. METHOTREXATE [Concomitant]
     Active Substance: METHOTREXATE
     Dosage: (INJECTABLE ONCE A WEEK)
  5. LOSARTAN [Concomitant]
     Active Substance: LOSARTAN
  6. ALPRAZOLAM [Concomitant]
     Active Substance: ALPRAZOLAM
  7. CITALOPRAM HYDROBROMIDE [Concomitant]
     Active Substance: CITALOPRAM HYDROBROMIDE
  8. IMIPRA [Concomitant]
  9. CYCLOBENZAPRINE [Concomitant]
     Active Substance: CYCLOBENZAPRINE
  10. CYCLOBENZAPRINE [Concomitant]
     Active Substance: CYCLOBENZAPRINE
  11. SIMVASTATIN [Concomitant]
     Active Substance: SIMVASTATIN
  12. OMEPRAZOLE [Concomitant]
     Active Substance: OMEPRAZOLE

REACTIONS (8)
  - Lower limb fracture [Unknown]
  - Arthralgia [Unknown]
  - Weight increased [Unknown]
  - Dermal cyst [Unknown]
  - Hypertension [Unknown]
  - Influenza [Unknown]
  - Drug ineffective [Unknown]
  - Cough [Unknown]

NARRATIVE: CASE EVENT DATE: 20211101
